FAERS Safety Report 12143435 (Version 1)
Quarter: 2016Q1

REPORT INFORMATION
  Report Type: Spontaneous
  Country: US (occurrence: US)
  Receive Date: 20160304
  Receipt Date: 20160304
  Transmission Date: 20160526
  Serious: No
  Sender: FDA-Public Use
  Company Number: US-JNJFOC-20160120181

PATIENT
  Age: 30 Year
  Sex: Male
  Weight: 78.47 kg

DRUGS (2)
  1. MENS ROGAINE EXTRA STRENGTH [Suspect]
     Active Substance: MINOXIDIL
     Route: 061
  2. MENS ROGAINE EXTRA STRENGTH [Suspect]
     Active Substance: MINOXIDIL
     Indication: ALOPECIA
     Dosage: HALF A CAP TWICE A DAY
     Route: 061
     Dates: start: 20160121, end: 20160122

REACTIONS (3)
  - Hyperaesthesia [Recovered/Resolved]
  - Erythema [Recovered/Resolved]
  - Skin irritation [Unknown]

NARRATIVE: CASE EVENT DATE: 20160123
